FAERS Safety Report 16375638 (Version 1)
Quarter: 2019Q2

REPORT INFORMATION
  Report Type: Spontaneous
  Country: CA (occurrence: CA)
  Receive Date: 20190531
  Receipt Date: 20190531
  Transmission Date: 20190711
  Serious: Yes (Other)
  Sender: FDA-Public Use
  Company Number: CA-TEVA-2019-CA-1057313

PATIENT
  Age: 68 Year
  Sex: Male

DRUGS (28)
  1. EPOETIN ALFA [Suspect]
     Active Substance: ERYTHROPOIETIN
     Route: 042
  2. EPOETIN ALFA [Suspect]
     Active Substance: ERYTHROPOIETIN
     Route: 058
  3. ACETAMINOPHEN. [Concomitant]
     Active Substance: ACETAMINOPHEN
     Dosage: 500 MILLIGRAM, 1 EVERY 6 HOURS  .
     Route: 048
  4. LACTULOSE. [Concomitant]
     Active Substance: LACTULOSE
     Dosage: 60 ML DAILY;
     Route: 048
  5. LORATADINE. [Concomitant]
     Active Substance: LORATADINE
     Dosage: 10 MILLIGRAM , 1 EVERY 2 DAYS .
     Route: 048
  6. VALPROIC ACID. [Suspect]
     Active Substance: VALPROIC ACID
     Indication: PRODUCT USED FOR UNKNOWN INDICATION
     Route: 065
  7. EPOETIN ALFA [Suspect]
     Active Substance: ERYTHROPOIETIN
     Route: 042
  8. EPOETIN ALFA [Suspect]
     Active Substance: ERYTHROPOIETIN
     Route: 058
  9. EPOETIN ALFA [Suspect]
     Active Substance: ERYTHROPOIETIN
     Route: 058
  10. CLOBAZAM. [Concomitant]
     Active Substance: CLOBAZAM
     Dosage: 10 MILLIGRAM , 1 EVERY 2 DAYS .
     Route: 048
  11. MACROGOL 3350 [Concomitant]
     Active Substance: POLYETHYLENE GLYCOL 3350
     Dosage: 17 GRAM DAILY;
     Route: 048
  12. METHADONE HYDROCHLORIDE. [Concomitant]
     Active Substance: METHADONE HYDROCHLORIDE
     Dosage: 10 MILLIGRAM, 1 EVERY 3 HOURS .
     Route: 048
  13. PHENYTOIN. [Suspect]
     Active Substance: PHENYTOIN
     Indication: PRODUCT USED FOR UNKNOWN INDICATION
     Route: 065
  14. EPOETIN ALFA [Suspect]
     Active Substance: ERYTHROPOIETIN
     Route: 042
  15. MELATONIN [Concomitant]
     Active Substance: MELATONIN
     Dosage: 3 MILLIGRAM
     Route: 048
  16. METHADONE HYDROCHLORIDE. [Concomitant]
     Active Substance: METHADONE HYDROCHLORIDE
     Dosage: 10 MILLIGRAM, 2 EVERY 3 DAYS.
     Route: 048
  17. EPOETIN ALFA [Suspect]
     Active Substance: ERYTHROPOIETIN
     Indication: NEPHROGENIC ANAEMIA
     Route: 042
  18. EPOETIN ALFA [Suspect]
     Active Substance: ERYTHROPOIETIN
     Route: 042
  19. EPOETIN ALFA [Suspect]
     Active Substance: ERYTHROPOIETIN
     Route: 058
  20. CALCIUM SENNOSIDES A + B [Concomitant]
     Dosage: 17.2 MILLIGRAM DAILY;
     Route: 048
  21. CARBAMAZEPINE. [Suspect]
     Active Substance: CARBAMAZEPINE
     Indication: PRODUCT USED FOR UNKNOWN INDICATION
     Route: 048
  22. ANAKINRA [Suspect]
     Active Substance: ANAKINRA
     Indication: PRODUCT USED FOR UNKNOWN INDICATION
     Route: 058
  23. EPOETIN ALFA [Suspect]
     Active Substance: ERYTHROPOIETIN
     Route: 042
  24. UREA. [Concomitant]
     Active Substance: UREA
     Dosage: 2 DOSAGE FORMS DAILY;
     Route: 061
  25. VENLAFAXINE HYDROCHLORIDE. [Concomitant]
     Active Substance: VENLAFAXINE HYDROCHLORIDE
     Dosage: 75 MILLIGRAM DAILY;
     Route: 048
  26. EPOETIN ALFA [Suspect]
     Active Substance: ERYTHROPOIETIN
     Route: 058
  27. EPOETIN ALFA [Suspect]
     Active Substance: ERYTHROPOIETIN
     Route: 058
  28. DIMENHYDRINATE. [Concomitant]
     Active Substance: DIMENHYDRINATE
     Dosage: 50 MILLIGRAM, 1 EVERY 6 HOURS  .
     Route: 048

REACTIONS (4)
  - Pancytopenia [Recovered/Resolved]
  - Anti-erythropoietin antibody negative [Recovered/Resolved]
  - Escherichia bacteraemia [Recovered/Resolved]
  - Hyperparathyroidism [Recovered/Resolved]
